FAERS Safety Report 8477321-9 (Version None)
Quarter: 2012Q2

REPORT INFORMATION
  Report Type: 
  Country: None (occurrence: None)
  Receive Date: 20120629
  Receipt Date: 20120619
  Transmission Date: 20120825
  Serious: Yes (Disabling)
  Sender: FDA-Public Use
  Company Number: NL-JNJFOC-20120609249

PATIENT
  Sex: Female
  Weight: 90 kg

DRUGS (4)
  1. SEMAP [Suspect]
     Indication: PRODUCT USED FOR UNKNOWN INDICATION
     Route: 065
     Dates: start: 19900122
  2. CISORDINOL [Suspect]
     Indication: PRODUCT USED FOR UNKNOWN INDICATION
     Route: 065
  3. CISORDINOL [Suspect]
     Route: 065
     Dates: start: 19900122
  4. RISPERDAL [Suspect]
     Indication: PRODUCT USED FOR UNKNOWN INDICATION
     Route: 048
     Dates: start: 19900122

REACTIONS (3)
  - HYPERTRICHOSIS [None]
  - VOMITING [None]
  - ECZEMA [None]
